FAERS Safety Report 25947691 (Version 1)
Quarter: 2025Q4

REPORT INFORMATION
  Report Type: Spontaneous
  Country: US (occurrence: None)
  Receive Date: 20251021
  Receipt Date: 20251021
  Transmission Date: 20260117
  Serious: Yes (Other)
  Sender: FDA-CTU
  Company Number: None

PATIENT
  Age: 48 Year
  Sex: Female

DRUGS (9)
  1. MYCOPHENOLIC ACID [Suspect]
     Active Substance: MYCOPHENOLIC ACID
     Indication: Renal transplant
     Dosage: FREQUENCY : TWICE A DAY;?
     Route: 048
     Dates: start: 20250621
  2. TACROLIMUS [Suspect]
     Active Substance: TACROLIMUS
     Indication: Renal transplant
     Dosage: OTHER FREQUENCY : DAILY 1MG AM, 2MG PM;?
     Route: 048
     Dates: start: 20250924
  3. ASPIRIN [Concomitant]
     Active Substance: ASPIRIN
  4. WES-PHOS [Concomitant]
  5. SUMATRIPTAN [Concomitant]
     Active Substance: SUMATRIPTAN
  6. MAG 64 D.R. [Concomitant]
  7. DILTIAZEM GD [Concomitant]
  8. PREDNISONE [Concomitant]
     Active Substance: PREDNISONE
  9. VITAMIN D3 [Concomitant]
     Active Substance: CHOLECALCIFEROL

REACTIONS (1)
  - Renal neoplasm [None]

NARRATIVE: CASE EVENT DATE: 20251020
